FAERS Safety Report 7235257-5 (Version None)
Quarter: 2011Q1

REPORT INFORMATION
  Report Type: 
  Country: None (occurrence: None)
  Receive Date: 20110114
  Receipt Date: 20110114
  Transmission Date: 20110831
  Serious: No
  Sender: FDA-Public Use
  Company Number: None

PATIENT
  Sex: Female
  Weight: 76 kg

DRUGS (3)
  1. METHOTREXATE [Suspect]
     Dosage: 442MG
  2. PEG-L- ASPARAGINASE (K-H) [Suspect]
     Dosage: 8500 UNIT
  3. VINCRISTINE SULFATE [Suspect]
     Dosage: 6 MG

REACTIONS (1)
  - NEUTROPHIL COUNT DECREASED [None]
